FAERS Safety Report 24230460 (Version 1)
Quarter: 2024Q3

REPORT INFORMATION
  Report Type: Report from Study
  Country: ES (occurrence: ES)
  Receive Date: 20240821
  Receipt Date: 20240821
  Transmission Date: 20241016
  Serious: Yes (Other)
  Sender: BOEHRINGER INGELHEIM
  Company Number: ES-ABBVIE-5830080

PATIENT
  Age: 62 Year
  Sex: Male
  Weight: 65 kg

DRUGS (12)
  1. PRAMIPEXOLE [Suspect]
     Active Substance: PRAMIPEXOLE\PRAMIPEXOLE DIHYDROCHLORIDE
     Indication: Product used for unknown indication
     Route: 048
     Dates: start: 20240704, end: 20240713
  2. PRAMIPEXOLE [Suspect]
     Active Substance: PRAMIPEXOLE\PRAMIPEXOLE DIHYDROCHLORIDE
     Route: 048
     Dates: start: 20240714
  3. PRAMIPEXOLE [Suspect]
     Active Substance: PRAMIPEXOLE\PRAMIPEXOLE DIHYDROCHLORIDE
     Route: 048
     Dates: end: 2024
  4. CARBIDOPA\LEVODOPA [Suspect]
     Active Substance: CARBIDOPA\LEVODOPA
     Indication: Parkinson^s disease
     Dosage: 240 MG/ML + 12 MG/ML SOLUCION PARA PERFUSION
     Route: 058
     Dates: start: 20240522
  5. Deprax [Concomitant]
     Indication: Product used for unknown indication
     Dosage: FREQUENCY TEXT: 0-0-1.5 MG
     Dates: start: 2024
  6. ONGENTYS [Concomitant]
     Active Substance: OPICAPONE
     Indication: Product used for unknown indication
     Dosage: AT 9 AM
     Dates: start: 20240806
  7. STALEVO [Concomitant]
     Active Substance: CARBIDOPA\ENTACAPONE\LEVODOPA
     Indication: Parkinson^s disease
     Dosage: 200 AT 8 AM + 125 AT 12H-15H-18H-21H
     Dates: start: 2024, end: 2024
  8. AMANTADINE [Concomitant]
     Active Substance: AMANTADINE
     Indication: Parkinson^s disease
     Dates: start: 2024, end: 2024
  9. Hydropherol [Concomitant]
     Indication: Product used for unknown indication
  10. LORAZEPAM [Concomitant]
     Active Substance: LORAZEPAM
     Indication: Product used for unknown indication
     Dosage: FREQUENCY TEXT: 1-1-1.5 MG
     Dates: start: 2024
  11. SINEMET [Concomitant]
     Active Substance: CARBIDOPA\LEVODOPA
     Indication: Parkinson^s disease
     Dosage: FREQUENCY TEXT: AT 9AM-9PM
     Dates: start: 2024, end: 2024
  12. APOMORPHINE [Concomitant]
     Active Substance: APOMORPHINE
     Indication: Parkinson^s disease
     Dosage: FREQUENCY TEXT: FOR 12 HOURS
     Dates: start: 2024, end: 2024

REACTIONS (18)
  - Suspiciousness [Recovered/Resolved]
  - Aggression [Recovered/Resolved]
  - Restlessness [Unknown]
  - Disturbance in social behaviour [Unknown]
  - Mood altered [Recovering/Resolving]
  - Social problem [Unknown]
  - Bradykinesia [Unknown]
  - Muscle rigidity [Unknown]
  - Gait inability [Unknown]
  - On and off phenomenon [Unknown]
  - Irritability [Recovered/Resolved]
  - Constipation [Unknown]
  - Feeling of despair [Unknown]
  - Obstructive sleep apnoea syndrome [Unknown]
  - Dyskinesia [Unknown]
  - On and off phenomenon [Unknown]
  - Therapeutic response shortened [Unknown]
  - Negativism [Unknown]

NARRATIVE: CASE EVENT DATE: 20240101
